FAERS Safety Report 5498905-6 (Version None)
Quarter: 2007Q4

REPORT INFORMATION
  Report Type: 
  Country: None (occurrence: None)
  Receive Date: 20071026
  Receipt Date: 20070803
  Transmission Date: 20080405
  Serious: No
  Sender: FDA-Public Use
  Company Number: A0668128A

PATIENT
  Age: 83 Year
  Sex: Male

DRUGS (4)
  1. ADVAIR DISKUS 100/50 [Suspect]
     Dosage: 1PUFF TWICE PER DAY
     Route: 055
     Dates: start: 20060701
  2. LEXAPRO [Concomitant]
  3. METOPROLOL [Concomitant]
  4. ASACOL [Concomitant]

REACTIONS (3)
  - BACK PAIN [None]
  - DRY THROAT [None]
  - DYSPHONIA [None]
